FAERS Safety Report 10848280 (Version 1)
Quarter: 2015Q1

REPORT INFORMATION
  Report Type: Spontaneous
  Country: DZ (occurrence: DZ)
  Receive Date: 20150220
  Receipt Date: 20150220
  Transmission Date: 20150721
  Serious: Yes (Death)
  Sender: FDA-Public Use
  Company Number: DZ-BIOMARINAP-DZ-2015-105566

PATIENT
  Age: 10 Year
  Sex: Male
  Weight: 17 kg

DRUGS (2)
  1. NAGLAZYME [Suspect]
     Active Substance: GALSULFASE
     Indication: MUCOPOLYSACCHARIDOSIS VI
     Dosage: 17 MG, QW
     Route: 042
     Dates: start: 200706
  2. IBUPROFEN. [Concomitant]
     Active Substance: IBUPROFEN
     Indication: PRODUCT USED FOR UNKNOWN INDICATION
     Dosage: 60 MG, UNK
     Dates: start: 20150210

REACTIONS (7)
  - Dyspnoea [Unknown]
  - Cyanosis [Unknown]
  - Arthralgia [None]
  - Chest pain [Unknown]
  - Cardio-respiratory arrest [Fatal]
  - Coma [Unknown]
  - Headache [None]

NARRATIVE: CASE EVENT DATE: 20150210
